FAERS Safety Report 11568620 (Version 1)
Quarter: 2015Q3

REPORT INFORMATION
  Report Type: Spontaneous
  Country: US (occurrence: US)
  Receive Date: 20150916
  Receipt Date: 20150916
  Transmission Date: 20151125
  Serious: No
  Sender: FDA-Public Use
  Company Number: US-ELI_LILLY_AND_COMPANY-US200908005096

PATIENT
  Sex: Female

DRUGS (1)
  1. FORTEO [Suspect]
     Active Substance: TERIPARATIDE
     Dosage: UNK, UNK

REACTIONS (10)
  - Pain [Unknown]
  - Rash pruritic [Unknown]
  - Anxiety [Unknown]
  - Arthralgia [Unknown]
  - Musculoskeletal discomfort [Unknown]
  - Herpes zoster [Recovered/Resolved]
  - Pain in extremity [Unknown]
  - Feeling cold [Unknown]
  - Feeling hot [Unknown]
  - Gait disturbance [Unknown]
